FAERS Safety Report 10237191 (Version 1)
Quarter: 2014Q2

REPORT INFORMATION
  Report Type: Spontaneous
  Country: DE (occurrence: DE)
  Receive Date: 20140613
  Receipt Date: 20140613
  Transmission Date: 20141212
  Serious: Yes (Other)
  Sender: FDA-Public Use
  Company Number: DE-TEVA-486854GER

PATIENT
  Age: 54 Year
  Sex: Female
  Weight: 80 kg

DRUGS (5)
  1. AZI-TEVA 500 MG FILMTABLETTEN [Suspect]
     Indication: COUGH
     Dosage: 500 MILLIGRAM DAILY;
     Route: 048
     Dates: start: 20140403, end: 20140405
  2. AZI-TEVA 500 MG FILMTABLETTEN [Suspect]
     Indication: INFECTION
  3. L THYROXIN 50 [Concomitant]
     Indication: HYPOTHYROIDISM
     Dosage: 1-0-0
     Route: 048
     Dates: start: 2004
  4. ZANERIL [Concomitant]
     Indication: HYPERTENSION
     Dosage: 1 DOSAGE FORMS DAILY; 1 DF: 20 MG ENALAPRIL AND 10 MG LERCANIDIPINE, 1-0-0
     Route: 048
     Dates: start: 20140301
  5. ZANERIL [Concomitant]
     Dosage: 1 DOSAGE FORMS DAILY; 1DF: 10 MG ENALAPRIL AND 10 MG LERCANIDIPINE,  1-0-0
     Route: 048
     Dates: end: 20140228

REACTIONS (7)
  - Haematochezia [Recovered/Resolved]
  - Hypotension [Recovered/Resolved]
  - Syncope [Recovered/Resolved]
  - Dizziness [Recovered/Resolved]
  - Nausea [Recovered/Resolved]
  - Vomiting [Recovered/Resolved]
  - Diarrhoea [Recovered/Resolved]
